FAERS Safety Report 6025175-2 (Version None)
Quarter: 2008Q4

REPORT INFORMATION
  Report Type: 
  Country: None (occurrence: None)
  Receive Date: 20081231
  Receipt Date: 20081218
  Transmission Date: 20090506
  Serious: Yes (Other)
  Sender: FDA-Public Use
  Company Number: JP-ROCHE-605396

PATIENT
  Age: 8 Year
  Sex: Female

DRUGS (1)
  1. TAMIFLU [Suspect]
     Indication: INFLUENZA
     Dosage: DRUG NAME REPORTED AS TAMIFLU DRY SYRUP 3%
     Route: 048
     Dates: start: 20081205

REACTIONS (1)
  - ABNORMAL BEHAVIOUR [None]
